FAERS Safety Report 8050413-4 (Version None)
Quarter: 2012Q1

REPORT INFORMATION
  Report Type: 
  Country: None (occurrence: None)
  Receive Date: 20120117
  Receipt Date: 20120106
  Transmission Date: 20120608
  Serious: Yes (Hospitalization)
  Sender: FDA-Public Use
  Company Number: US-ACTELION-A-NJ2012-59388

PATIENT

DRUGS (1)
  1. TRACLEER [Suspect]
     Indication: PULMONARY ARTERIAL HYPERTENSION
     Dosage: UNK
     Route: 048
     Dates: start: 20110113

REACTIONS (12)
  - COELIAC DISEASE [None]
  - ACUTE RESPIRATORY FAILURE [None]
  - RESPIRATORY RATE DECREASED [None]
  - GASTROENTERITIS VIRAL [None]
  - TRANSFUSION [None]
  - DIARRHOEA [None]
  - CHRONIC OBSTRUCTIVE PULMONARY DISEASE [None]
  - PAIN IN EXTREMITY [None]
  - OEDEMA PERIPHERAL [None]
  - HAEMORRHAGE [None]
  - DYSPNOEA [None]
  - FLUID OVERLOAD [None]
